FAERS Safety Report 19953639 (Version 1)
Quarter: 2021Q4

REPORT INFORMATION
  Report Type: Report from Study
  Country: US (occurrence: US)
  Receive Date: 20211014
  Receipt Date: 20211014
  Transmission Date: 20220303
  Serious: No
  Sender: FDA-Public Use
  Company Number: US-IPSEN BIOPHARMACEUTICALS, INC.-2021-24352

PATIENT
  Age: 56 Year
  Sex: Male

DRUGS (2)
  1. SOMATULINE DEPOT [Suspect]
     Active Substance: LANREOTIDE ACETATE
     Indication: Metastatic carcinoid tumour
     Dosage: 120MG/ 0.5ML, EVERY FOUR WEEKS, DEEP SUBCUTANEOUS
     Route: 058
     Dates: start: 202003
  2. LEVOTHYROXINE [Concomitant]
     Active Substance: LEVOTHYROXINE

REACTIONS (1)
  - Thyroid hormones decreased [Recovered/Resolved]

NARRATIVE: CASE EVENT DATE: 20210901
